FAERS Safety Report 11229848 (Version 1)
Quarter: 2015Q2

REPORT INFORMATION
  Report Type: Spontaneous
  Country: US (occurrence: US)
  Receive Date: 20150630
  Receipt Date: 20150630
  Transmission Date: 20150821
  Serious: No
  Sender: FDA-Public Use
  Company Number: US-BAUSCH-BL-2014-006758

PATIENT
  Sex: Female

DRUGS (1)
  1. OFLOXACIN OPHTHALMIC [Suspect]
     Active Substance: OFLOXACIN
     Indication: CONJUNCTIVAL OEDEMA
     Route: 047

REACTIONS (1)
  - Conjunctival oedema [Unknown]
